FAERS Safety Report 7937193-5 (Version None)
Quarter: 2011Q4

REPORT INFORMATION
  Report Type: 
  Country: None (occurrence: None)
  Receive Date: 20111123
  Receipt Date: 20110405
  Transmission Date: 20120403
  Serious: Yes (Hospitalization)
  Sender: FDA-Public Use
  Company Number: US-GLAXOSMITHKLINE-A0922106A

PATIENT
  Age: 77 Year
  Sex: Male

DRUGS (1)
  1. AVANDIA [Suspect]
     Indication: DIABETES MELLITUS
     Dosage: 4MG PER DAY
     Route: 048
     Dates: end: 20060101

REACTIONS (6)
  - ANXIETY [None]
  - VASCULAR INJURY [None]
  - GAIT DISTURBANCE [None]
  - CARDIAC DISORDER [None]
  - OEDEMA PERIPHERAL [None]
  - DYSPNOEA [None]
